FAERS Safety Report 25246664 (Version 1)
Quarter: 2025Q2

REPORT INFORMATION
  Report Type: Spontaneous
  Country: FR (occurrence: FR)
  Receive Date: 20250428
  Receipt Date: 20250428
  Transmission Date: 20250717
  Serious: Yes (Hospitalization, Other)
  Sender: MYLAN
  Company Number: None

PATIENT
  Sex: Male
  Weight: 3.25 kg

DRUGS (12)
  1. SERTRALINE [Interacting]
     Active Substance: SERTRALINE HYDROCHLORIDE
     Indication: Depression
     Dosage: 50 MILLIGRAM, QD
     Dates: start: 20240712, end: 20250329
  2. SERTRALINE [Interacting]
     Active Substance: SERTRALINE HYDROCHLORIDE
     Dosage: 50 MILLIGRAM, QD
     Route: 064
     Dates: start: 20240712, end: 20250329
  3. SERTRALINE [Interacting]
     Active Substance: SERTRALINE HYDROCHLORIDE
     Dosage: 50 MILLIGRAM, QD
     Route: 064
     Dates: start: 20240712, end: 20250329
  4. SERTRALINE [Interacting]
     Active Substance: SERTRALINE HYDROCHLORIDE
     Dosage: 50 MILLIGRAM, QD
     Dates: start: 20240712, end: 20250329
  5. HYDROXYZINE HYDROCHLORIDE [Interacting]
     Active Substance: HYDROXYZINE HYDROCHLORIDE
     Indication: Anxiety
     Dosage: 12.5 MILLIGRAM, QD
     Dates: start: 202501, end: 20250329
  6. HYDROXYZINE HYDROCHLORIDE [Interacting]
     Active Substance: HYDROXYZINE HYDROCHLORIDE
     Dosage: 12.5 MILLIGRAM, QD
     Dates: start: 202501, end: 20250329
  7. HYDROXYZINE HYDROCHLORIDE [Interacting]
     Active Substance: HYDROXYZINE HYDROCHLORIDE
     Dosage: 12.5 MILLIGRAM, QD
     Route: 064
     Dates: start: 202501, end: 20250329
  8. HYDROXYZINE HYDROCHLORIDE [Interacting]
     Active Substance: HYDROXYZINE HYDROCHLORIDE
     Dosage: 12.5 MILLIGRAM, QD
     Route: 064
     Dates: start: 202501, end: 20250329
  9. HYDROXYZINE HYDROCHLORIDE [Interacting]
     Active Substance: HYDROXYZINE HYDROCHLORIDE
     Dosage: 12.5 MILLIGRAM, QD
     Dates: start: 202501, end: 20250329
  10. HYDROXYZINE HYDROCHLORIDE [Interacting]
     Active Substance: HYDROXYZINE HYDROCHLORIDE
     Dosage: 12.5 MILLIGRAM, QD
     Dates: start: 202501, end: 20250329
  11. HYDROXYZINE HYDROCHLORIDE [Interacting]
     Active Substance: HYDROXYZINE HYDROCHLORIDE
     Dosage: 12.5 MILLIGRAM, QD
     Route: 064
     Dates: start: 202501, end: 20250329
  12. HYDROXYZINE HYDROCHLORIDE [Interacting]
     Active Substance: HYDROXYZINE HYDROCHLORIDE
     Dosage: 12.5 MILLIGRAM, QD
     Route: 064
     Dates: start: 202501, end: 20250329

REACTIONS (6)
  - Neonatal hypoxia [Recovered/Resolved]
  - Somnolence [Recovered/Resolved]
  - Poor feeding infant [Recovered/Resolved]
  - Tremor [Recovered/Resolved]
  - Drug interaction [Unknown]
  - Foetal exposure during pregnancy [Recovered/Resolved]

NARRATIVE: CASE EVENT DATE: 20250329
